FAERS Safety Report 6508151-2 (Version None)
Quarter: 2009Q4

REPORT INFORMATION
  Report Type: 
  Country: None (occurrence: None)
  Receive Date: 20091221
  Receipt Date: 20091211
  Transmission Date: 20100525
  Serious: Yes (Other)
  Sender: FDA-Public Use
  Company Number: PHHY2009JP48319

PATIENT
  Sex: Male

DRUGS (2)
  1. NEORAL [Suspect]
     Indication: ANGIOLYMPHOID HYPERPLASIA WITH EOSINOPHILIA
     Dosage: 300 MG, DAILY
     Route: 048
     Dates: start: 20091023
  2. NEORAL [Suspect]
     Dosage: 150 MG, UNK
     Route: 048

REACTIONS (4)
  - INFLAMMATION [None]
  - INTRAOCULAR PRESSURE INCREASED [None]
  - PERIORBITAL OEDEMA [None]
  - VISUAL ACUITY REDUCED [None]
